FAERS Safety Report 24740177 (Version 2)
Quarter: 2025Q1

REPORT INFORMATION
  Report Type: Spontaneous
  Country: US (occurrence: US)
  Receive Date: 20241216
  Receipt Date: 20250101
  Transmission Date: 20250409
  Serious: No
  Sender: BIOGEN
  Company Number: US-BIOGEN-2024BI01279482

PATIENT
  Age: 27 Year
  Sex: Female

DRUGS (2)
  1. SKYCLARYS [Suspect]
     Active Substance: OMAVELOXOLONE
     Indication: Friedreich^s ataxia
     Route: 050
     Dates: start: 20240709
  2. SKYCLARYS [Suspect]
     Active Substance: OMAVELOXOLONE
     Route: 050
     Dates: start: 20240709

REACTIONS (9)
  - Joint effusion [Unknown]
  - Fall [Recovered/Resolved]
  - Chromaturia [Unknown]
  - Swelling face [Unknown]
  - Injury [Unknown]
  - Depressed level of consciousness [Unknown]
  - Hepatic enzyme increased [Recovered/Resolved]
  - Headache [Unknown]
  - Fatigue [Unknown]

NARRATIVE: CASE EVENT DATE: 20240801
